FAERS Safety Report 10066054 (Version 2)
Quarter: 2014Q3

REPORT INFORMATION
  Report Type: Spontaneous
  Country: US (occurrence: None)
  Receive Date: 20140328
  Receipt Date: 20140926
  Transmission Date: 20150326
  Serious: No
  Sender: FDA-Public Use
  Company Number: 1000051807

PATIENT
  Age: 91 Year
  Sex: Male

DRUGS (9)
  1. LINZESS [Suspect]
     Active Substance: LINACLOTIDE
     Indication: IRRITABLE BOWEL SYNDROME
     Route: 048
     Dates: start: 20131127, end: 2013
  2. LINZESS [Suspect]
     Active Substance: LINACLOTIDE
     Indication: IRRITABLE BOWEL SYNDROME
     Dosage: OPENED UP CAPSULE AND ONLY TOOK PART OF THE MEDICATION (ONCE), ORAL
     Route: 048
     Dates: start: 20140728, end: 20140728
  3. ASPIRIN (ACETYLSALICYLIC ACID) [Concomitant]
     Active Substance: ASPIRIN
  4. NEXIUM [Concomitant]
     Active Substance: ESOMEPRAZOLE MAGNESIUM
  5. LORAZEPAM. [Concomitant]
     Active Substance: LORAZEPAM
  6. LOSARTAN [Concomitant]
     Active Substance: LOSARTAN
  7. LINZESS [Suspect]
     Active Substance: LINACLOTIDE
     Indication: IRRITABLE BOWEL SYNDROME
     Route: 048
     Dates: start: 2013, end: 2013
  8. AVODART (DUTASTERIDE) [Concomitant]
  9. GAS X (SIMETICONE) [Concomitant]

REACTIONS (3)
  - Diarrhoea [None]
  - Intentional product misuse [None]
  - Abdominal pain lower [None]

NARRATIVE: CASE EVENT DATE: 2013
